FAERS Safety Report 4682255-1 (Version None)
Quarter: 2005Q2

REPORT INFORMATION
  Report Type: 
  Country: None (occurrence: None)
  Receive Date: 20050606
  Receipt Date: 20050117
  Transmission Date: 20051028
  Serious: Yes (Disabling)
  Sender: FDA-Public Use
  Company Number: PHBS2005IT01172

PATIENT
  Age: 57 Year
  Sex: Female

DRUGS (10)
  1. NOLVADEX [Concomitant]
     Route: 065
  2. ARIMIDEX [Concomitant]
     Route: 065
  3. MEGACE [Concomitant]
     Route: 065
  4. TENORETIC 100 [Concomitant]
     Route: 065
  5. MEPRAL [Concomitant]
     Route: 065
  6. NEUPOGEN [Concomitant]
     Route: 065
  7. PANTECTA [Concomitant]
     Dosage: 40 MG/D
     Route: 065
  8. PERIDON [Concomitant]
     Route: 065
  9. AREDIA [Suspect]
     Indication: METASTASES TO BONE
     Dosage: 90 MG, QMO
     Route: 042
     Dates: start: 19981029, end: 20020509
  10. ZOMETA [Suspect]
     Indication: METASTASES TO BONE
     Dosage: 4 MG, QMO
     Route: 042
     Dates: start: 20020606, end: 20041026

REACTIONS (3)
  - BONE DISORDER [None]
  - TOOTH ABSCESS [None]
  - TOOTH EXTRACTION [None]
